FAERS Safety Report 21967825 (Version 5)
Quarter: 2023Q2

REPORT INFORMATION
  Report Type: Spontaneous
  Country: US (occurrence: US)
  Receive Date: 20230208
  Receipt Date: 20230404
  Transmission Date: 20230721
  Serious: No
  Sender: FDA-Public Use
  Company Number: US-PFIZER INC-202300051800

PATIENT
  Age: 37 Year
  Sex: Male
  Weight: 88.45 kg

DRUGS (2)
  1. GENOTROPIN [Suspect]
     Active Substance: SOMATROPIN
     Indication: Muscular dystrophy
     Dosage: UNK, DAILY (2.4 DAILY)
     Route: 058
  2. GENOTROPIN [Suspect]
     Active Substance: SOMATROPIN
     Dosage: UNK

REACTIONS (4)
  - Poor quality device used [Unknown]
  - Device delivery system issue [Unknown]
  - Device mechanical issue [Unknown]
  - Off label use [Unknown]
